FAERS Safety Report 6316109-1 (Version None)
Quarter: 2009Q3

REPORT INFORMATION
  Report Type: 
  Country: None (occurrence: None)
  Receive Date: 20090820
  Receipt Date: 20090812
  Transmission Date: 20100115
  Serious: Yes (Other)
  Sender: FDA-Public Use
  Company Number: PHHY2009AT22374

PATIENT
  Age: 86 Year
  Sex: Female
  Weight: 48 kg

DRUGS (4)
  1. EXELON [Suspect]
     Dosage: 4.6 MG, QD
     Route: 062
     Dates: start: 20080819, end: 20080829
  2. PLAVIX [Concomitant]
     Indication: ANGIOPATHY
  3. DOMINAL FORTE [Concomitant]
     Indication: SLEEP DISORDER
  4. SIMVASTATIN [Concomitant]
     Indication: LIPID METABOLISM DISORDER

REACTIONS (3)
  - AGITATION [None]
  - HALLUCINATION, VISUAL [None]
  - RESTLESSNESS [None]
